FAERS Safety Report 11344721 (Version 1)
Quarter: 2015Q3

REPORT INFORMATION
  Report Type: Spontaneous
  Country: CN (occurrence: CN)
  Receive Date: 20150806
  Receipt Date: 20150806
  Transmission Date: 20151125
  Serious: Yes (Other)
  Sender: FDA-Public Use
  Company Number: CN-NOVOPROD-412957

PATIENT
  Sex: Male

DRUGS (1)
  1. NOVOMIX 30 PENFILL [Suspect]
     Active Substance: INSULIN ASPART
     Indication: PRODUCT USED FOR UNKNOWN INDICATION
     Dosage: UNK
     Route: 065
     Dates: start: 201102

REACTIONS (3)
  - Pulmonary tuberculosis [Unknown]
  - Injection site atrophy [Not Recovered/Not Resolved]
  - Diabetic foot [Unknown]

NARRATIVE: CASE EVENT DATE: 201204
